FAERS Safety Report 7615813-2 (Version None)
Quarter: 2011Q3

REPORT INFORMATION
  Report Type: 
  Country: None (occurrence: None)
  Receive Date: 20110711
  Receipt Date: 20110627
  Transmission Date: 20111222
  Serious: Yes (Life-Threatening)
  Sender: FDA-Public Use
  Company Number: 1000021934

PATIENT
  Age: 58 Year
  Sex: Male

DRUGS (5)
  1. DIPYRIDAMOLE [Concomitant]
  2. TRIMETHOPRIM (TRIMETHOPRIM) (TRIMETHOPRIM) [Concomitant]
  3. CITALOPRAM HYDROBROMIDE [Suspect]
     Indication: DEPRESSION
     Dosage: 20 MG (20 MG,1 IN 1 D),ORAL
     Route: 048
     Dates: start: 20110228, end: 20110228
  4. TIZANIDINE HCL [Suspect]
     Indication: MUSCLE SPASTICITY
     Dosage: 8 MG (2 MG,4 IN 1 D),ORAL
     Route: 048
     Dates: start: 20070101
  5. ASPIRIN [Concomitant]

REACTIONS (2)
  - HYPOTENSION [None]
  - DRUG INTERACTION [None]
